FAERS Safety Report 25624023 (Version 1)
Quarter: 2025Q3

REPORT INFORMATION
  Report Type: Spontaneous
  Country: US (occurrence: US)
  Receive Date: 20250730
  Receipt Date: 20250730
  Transmission Date: 20251021
  Serious: No
  Sender: SANOFI AVENTIS
  Company Number: US-SA-2025SA218872

PATIENT
  Age: 66 Year
  Sex: Female

DRUGS (9)
  1. DUPIXENT [Suspect]
     Active Substance: DUPILUMAB
     Indication: Dermatitis atopic
     Dosage: 300 MG, QOW
     Route: 058
     Dates: start: 202110
  2. DUPIXENT [Suspect]
     Active Substance: DUPILUMAB
     Indication: Eosinophilic oesophagitis
  3. ADK 10 [Concomitant]
  4. PROGESTERONE [Concomitant]
     Active Substance: PROGESTERONE
  5. PRASTERONE [Concomitant]
     Active Substance: PRASTERONE
  6. TESTOSTERONE [Concomitant]
     Active Substance: TESTOSTERONE
  7. NALTREXONE HYDROCHLORIDE [Concomitant]
     Active Substance: NALTREXONE HYDROCHLORIDE
  8. VITAMIN C [Concomitant]
     Active Substance: ASCORBIC ACID
  9. MAGNESIUM [MAGNESIUM CHELATE] [Concomitant]

REACTIONS (5)
  - Stress [Unknown]
  - Dermatitis atopic [Unknown]
  - Rash [Unknown]
  - Eosinophilic oesophagitis [Unknown]
  - Alopecia [Unknown]

NARRATIVE: CASE EVENT DATE: 20250101
